FAERS Safety Report 15351971 (Version 2)
Quarter: 2019Q4

REPORT INFORMATION
  Report Type: Report from Study
  Country: BE (occurrence: BE)
  Receive Date: 20180905
  Receipt Date: 20191126
  Transmission Date: 20200122
  Serious: Yes (Other)
  Sender: FDA-Public Use
  Company Number: BE-PFIZER INC-2018353033

PATIENT
  Sex: Female
  Weight: 61 kg

DRUGS (27)
  1. CARBOPLATIN. [Suspect]
     Active Substance: CARBOPLATIN
     Dosage: 175 MG/M2, EVERY 3 WEEKS, 5AUC
     Route: 042
     Dates: start: 20160414
  2. CARBOPLATIN. [Suspect]
     Active Substance: CARBOPLATIN
     Dosage: 175 MG/M2, EVERY 3 WEEKS, 5 AUC
     Route: 042
     Dates: start: 20151210
  3. BEVACIZUMAB. [Suspect]
     Active Substance: BEVACIZUMAB
     Dosage: 842 MG, EVERY 3 WEEKS
     Route: 042
     Dates: start: 20160524
  4. DAFLON [DIOSMIN;HESPERIDIN] [Concomitant]
     Dosage: UNK
     Route: 065
     Dates: start: 20161021
  5. PROLOPA [Concomitant]
     Active Substance: BENSERAZIDE\LEVODOPA
     Dosage: UNK
     Route: 065
     Dates: start: 20160913
  6. CISPLATIN. [Suspect]
     Active Substance: CISPLATIN
     Indication: OVARIAN CANCER
     Dosage: UNK
     Route: 042
  7. BEVACIZUMAB. [Suspect]
     Active Substance: BEVACIZUMAB
     Dosage: 923 MG, EVERY 3 WEEKS
     Route: 042
     Dates: start: 20160104
  8. FORLAX [Concomitant]
     Active Substance: POLYETHYLENE GLYCOL 4000
     Dosage: UNK
  9. LOPERAMIDE [Concomitant]
     Active Substance: LOPERAMIDE
     Dosage: UNK
     Route: 065
     Dates: start: 20161209
  10. ANTIMETIL [Concomitant]
     Dosage: UNK
     Route: 065
     Dates: start: 20160517
  11. CARBOPLATIN. [Suspect]
     Active Substance: CARBOPLATIN
     Dosage: 5 AUC, EVERY 3 WEEKS
     Route: 042
     Dates: start: 20151120, end: 20151210
  12. PACLITAXEL. [Suspect]
     Active Substance: PACLITAXEL
     Dosage: 175 MG/M2, EVERY 3 WEEKS
     Route: 042
     Dates: start: 20160414
  13. BEVACIZUMAB. [Suspect]
     Active Substance: BEVACIZUMAB
     Indication: OVARIAN CANCER
     Dosage: 821 MG, EVERY 3 WEEKS
     Route: 042
     Dates: start: 20160414
  14. ZOPICLONE [Concomitant]
     Active Substance: ZOPICLONE
     Dosage: UNK
     Route: 065
     Dates: start: 2010
  15. ASAFLOW [Concomitant]
     Active Substance: ASPIRIN
     Dosage: UNK
     Route: 065
     Dates: start: 20161018
  16. PACLITAXEL. [Suspect]
     Active Substance: PACLITAXEL
     Dosage: 175 MG/M2, EVERY 3 WEEKS
     Route: 042
     Dates: start: 20151210
  17. PACLITAXEL. [Suspect]
     Active Substance: PACLITAXEL
     Dosage: 175 MG/M2, EVERY 3 WEEKS
     Route: 042
     Dates: start: 20160104
  18. CETAVLEX [CETRIMIDE;CHLORHEXIDINE HYDROCHLORIDE] [Concomitant]
     Dosage: UNK
     Route: 065
     Dates: start: 20151126, end: 20151126
  19. PERIO-AID [Concomitant]
     Dosage: UNK
     Route: 065
     Dates: start: 20160714
  20. BEVACIZUMAB. [Suspect]
     Active Substance: BEVACIZUMAB
     Dosage: 915 MG, EVERY 3 WEEKS
     Route: 042
     Dates: start: 20151120
  21. CARBOPLATIN. [Suspect]
     Active Substance: CARBOPLATIN
     Indication: OVARIAN CANCER
     Dosage: 175 MG/M2, EVERY 3 WEEKS, 5AUC
     Route: 042
     Dates: start: 20160503, end: 20160503
  22. CARBOPLATIN. [Suspect]
     Active Substance: CARBOPLATIN
     Dosage: 175 MG/M2, EVERY 3 WEEKS, 5 AUC
     Route: 042
     Dates: start: 20160104
  23. PACLITAXEL. [Suspect]
     Active Substance: PACLITAXEL
     Indication: OVARIAN CANCER
     Dosage: 175 MG/M2, EVERY 3 WEEKS
     Route: 042
     Dates: start: 20151120, end: 20151210
  24. BEVACIZUMAB. [Suspect]
     Active Substance: BEVACIZUMAB
     Dosage: 830 MG, EVERY 3 WEEKS
     Route: 042
     Dates: start: 20160614
  25. VESICARE [Concomitant]
     Active Substance: SOLIFENACIN SUCCINATE
     Dosage: UNK
     Route: 065
     Dates: start: 20161116
  26. PACLITAXEL. [Suspect]
     Active Substance: PACLITAXEL
     Dosage: 175 MG/M2, EVERY 3 WEEKS
     Route: 042
     Dates: start: 20160503, end: 20160503
  27. BEVACIZUMAB. [Suspect]
     Active Substance: BEVACIZUMAB
     Dosage: 842 MG, EVERY 3 WEEKS
     Route: 042
     Dates: start: 20160503

REACTIONS (16)
  - Epistaxis [Recovered/Resolved]
  - Lymphocele [Recovered/Resolved]
  - Anaemia [Recovered/Resolved]
  - Tooth fracture [Not Recovered/Not Resolved]
  - Dyspepsia [Recovered/Resolved]
  - Oedema peripheral [Not Recovered/Not Resolved]
  - Disturbance in attention [Not Recovered/Not Resolved]
  - Urge incontinence [Not Recovered/Not Resolved]
  - Tooth infection [Recovered/Resolved]
  - Neutropenia [Recovered/Resolved]
  - Epistaxis [Recovered/Resolved]
  - Diarrhoea [Not Recovered/Not Resolved]
  - Alopecia [Recovered/Resolved]
  - Ingrowing nail [Recovered/Resolved]
  - Polyneuropathy [Not Recovered/Not Resolved]
  - Parkinson^s disease [Not Recovered/Not Resolved]

NARRATIVE: CASE EVENT DATE: 20151202
